FAERS Safety Report 13033199 (Version 3)
Quarter: 2017Q1

REPORT INFORMATION
  Report Type: Spontaneous
  Country: AU (occurrence: AU)
  Receive Date: 20161216
  Receipt Date: 20170114
  Transmission Date: 20170428
  Serious: Yes (Death, Hospitalization, Other)
  Sender: FDA-Public Use
  Company Number: PHHY2016AU110988

PATIENT
  Age: 72 Year
  Sex: Male
  Weight: 48 kg

DRUGS (1)
  1. ULTIBRO BREEZHALER [Suspect]
     Active Substance: GLYCOPYRRONIUM\INDACATEROL
     Indication: CHRONIC OBSTRUCTIVE PULMONARY DISEASE
     Dosage: QD
     Route: 055
     Dates: start: 20160627, end: 20160901

REACTIONS (9)
  - Chronic obstructive pulmonary disease [Recovered/Resolved]
  - Right ventricular failure [Unknown]
  - Brain natriuretic peptide increased [Unknown]
  - Chronic obstructive pulmonary disease [Recovered/Resolved]
  - Inappropriate schedule of drug administration [Unknown]
  - Pulmonary hypertension [Unknown]
  - Angioedema [Recovered/Resolved]
  - Death [Fatal]
  - Dyspnoea [Recovering/Resolving]

NARRATIVE: CASE EVENT DATE: 20160715
